FAERS Safety Report 8606839 (Version 2)
Quarter: 2013Q2

REPORT INFORMATION
  Report Type: Spontaneous
  Country: US (occurrence: US)
  Receive Date: 20120611
  Receipt Date: 20130617
  Transmission Date: 20140414
  Serious: Yes (Hospitalization, Disabling)
  Sender: FDA-Public Use
  Company Number: US-ASTRAZENECA-2012SE35273

PATIENT
  Age: 58 Year
  Sex: Female

DRUGS (11)
  1. NEXIUM [Suspect]
     Indication: GASTROOESOPHAGEAL REFLUX DISEASE
     Route: 048
     Dates: start: 200509
  2. NEXIUM [Suspect]
     Indication: BARRETT^S OESOPHAGUS
     Route: 048
     Dates: start: 200509
  3. NEXIUM [Suspect]
     Indication: GASTROOESOPHAGEAL REFLUX DISEASE
     Route: 048
     Dates: start: 20120604
  4. NEXIUM [Suspect]
     Indication: BARRETT^S OESOPHAGUS
     Route: 048
     Dates: start: 20120604
  5. CITALOPRAM [Concomitant]
     Indication: DEPRESSION
  6. OXYBUTYNIN [Concomitant]
     Indication: BLADDER DISORDER
     Route: 048
     Dates: start: 20130408
  7. NAPROXEN [Concomitant]
     Indication: PAIN
  8. TYLENOL [Concomitant]
  9. MELOXICAM [Concomitant]
     Route: 048
     Dates: start: 20120924
  10. TUMS [Concomitant]
  11. ALKA-SELTZER [Concomitant]

REACTIONS (10)
  - Osteoporosis [Unknown]
  - Arthropathy [Unknown]
  - Arthritis [Unknown]
  - Back pain [Unknown]
  - Calcium deficiency [Unknown]
  - Intervertebral disc degeneration [Unknown]
  - Multiple fractures [Unknown]
  - Neck pain [Unknown]
  - Arthralgia [Unknown]
  - Depression [Unknown]
